FAERS Safety Report 11271219 (Version 1)
Quarter: 2015Q3

REPORT INFORMATION
  Report Type: Spontaneous
  Country: CN (occurrence: CN)
  Receive Date: 20150714
  Receipt Date: 20150714
  Transmission Date: 20151125
  Serious: Yes (Hospitalization)
  Sender: FDA-Public Use
  Company Number: CN-AMEDRA PHARMACEUTICALS LLC-2015AMD00070

PATIENT
  Age: 15 Year
  Weight: 52.5 kg

DRUGS (1)
  1. ZENTEL [Suspect]
     Active Substance: ALBENDAZOLE
     Indication: INFECTION PARASITIC
     Dosage: 2 TABLETS, 1X/DAY
     Route: 048
     Dates: start: 20150405, end: 20150405

REACTIONS (4)
  - Transaminases increased [Recovered/Resolved]
  - Henoch-Schonlein purpura [Not Recovered/Not Resolved]
  - Platelet count decreased [Unknown]
  - Protein urine present [Unknown]

NARRATIVE: CASE EVENT DATE: 20150406
